FAERS Safety Report 5059277-4 (Version None)
Quarter: 2006Q3

REPORT INFORMATION
  Report Type: 
  Country: None (occurrence: None)
  Receive Date: 20060718
  Receipt Date: 20060711
  Transmission Date: 20061208
  Serious: No
  Sender: FDA-Public Use
  Company Number: 2005054358

PATIENT
  Age: 69 Year
  Sex: Female

DRUGS (1)
  1. TAHOR (ATORVASTATIN) [Suspect]
     Indication: HYPERCHOLESTEROLAEMIA
     Dosage: ORAL
     Route: 048
     Dates: start: 20030101, end: 20031111

REACTIONS (8)
  - CONSTIPATION [None]
  - EOSINOPHILIA [None]
  - FIBROSIS [None]
  - HEADACHE [None]
  - INTERSTITIAL LUNG DISEASE [None]
  - RASH [None]
  - RENAL FAILURE [None]
  - RHABDOMYOLYSIS [None]
